FAERS Safety Report 11768108 (Version 1)
Quarter: 2015Q4

REPORT INFORMATION
  Report Type: Spontaneous
  Country: US (occurrence: None)
  Receive Date: 20151120
  Receipt Date: 20151120
  Transmission Date: 20160304
  Serious: Yes (Other)
  Sender: FDA-Public Use
  Company Number: None

PATIENT
  Age: 28 Year
  Sex: Female
  Weight: 81.65 kg

DRUGS (1)
  1. IMPLANON [Suspect]
     Active Substance: ETONOGESTREL
     Dates: start: 20120831, end: 20150531

REACTIONS (16)
  - Fungal infection [None]
  - Emotional disorder [None]
  - Hormone level abnormal [None]
  - Marital problem [None]
  - Irritability [None]
  - Menstrual disorder [None]
  - Economic problem [None]
  - Anger [None]
  - Loss of libido [None]
  - Personal relationship issue [None]
  - Personality change [None]
  - Mood altered [None]
  - Weight increased [None]
  - Depression [None]
  - Family stress [None]
  - Mental disorder [None]

NARRATIVE: CASE EVENT DATE: 20150831
